FAERS Safety Report 13299691 (Version 1)
Quarter: 2017Q1

REPORT INFORMATION
  Report Type: Spontaneous
  Country: FR (occurrence: FR)
  Receive Date: 20170306
  Receipt Date: 20170306
  Transmission Date: 20170428
  Serious: Yes (Disabling, Other)
  Sender: FDA-Public Use
  Company Number: FR-SA-2017SA034487

PATIENT
  Age: 47 Year
  Sex: Female

DRUGS (1)
  1. AUBAGIO [Suspect]
     Active Substance: TERIFLUNOMIDE
     Indication: MULTIPLE SCLEROSIS
     Route: 065
     Dates: start: 201612

REACTIONS (15)
  - Blood test abnormal [Unknown]
  - Formication [Unknown]
  - Muscle spasms [Unknown]
  - Fatigue [Unknown]
  - Vein disorder [Unknown]
  - Gait disturbance [Unknown]
  - Paraesthesia [Unknown]
  - Vomiting [Unknown]
  - Alopecia [Unknown]
  - Thirst [Unknown]
  - Feeling of body temperature change [Unknown]
  - Hypoacusis [Unknown]
  - Urinary incontinence [Unknown]
  - Weight decreased [Unknown]
  - Visual impairment [Unknown]

NARRATIVE: CASE EVENT DATE: 201702
